FAERS Safety Report 4751307-X (Version None)
Quarter: 2005Q3

REPORT INFORMATION
  Report Type: 
  Country: None (occurrence: None)
  Receive Date: 20050822
  Receipt Date: 20050810
  Transmission Date: 20060218
  Serious: Yes (Other)
  Sender: FDA-Public Use
  Company Number: DEU-2005-0001631

PATIENT
  Age: 49 Year
  Sex: Female

DRUGS (1)
  1. OXYGESIC (OXYCODONE HYDROCHLORIDE) CR TABLET [Suspect]
     Indication: PAIN
     Dosage: 20 + 10 MG, BID, ORAL
     Route: 048

REACTIONS (6)
  - FALL [None]
  - INJURY [None]
  - JAW DISORDER [None]
  - LOSS OF CONSCIOUSNESS [None]
  - PETIT MAL EPILEPSY [None]
  - SYNCOPE [None]
